FAERS Safety Report 4436351-4 (Version None)
Quarter: 2004Q3

REPORT INFORMATION
  Report Type: 
  Country: None (occurrence: None)
  Receive Date: 20040728
  Receipt Date: 20040210
  Transmission Date: 20050211
  Serious: Yes (Death)
  Sender: FDA-Public Use
  Company Number: 204489

PATIENT
  Age: 77 Year
  Sex: Male
  Weight: 101.6 kg

DRUGS (16)
  1. RITUXAN [Suspect]
     Indication: DIFFUSE LARGE B-CELL LYMPHOMA
     Dosage: 50 MG/HR, SINGLE, INTRAVENOUS
     Route: 042
     Dates: start: 20040107, end: 20040107
  2. TYLENOL [Concomitant]
  3. BENADRYL [Concomitant]
  4. IVF (INTRAVENOUS SOLUTION NOS) [Concomitant]
  5. DILTIAZEM HYDROCHLORIDE [Concomitant]
  6. GATIFLOXACIN [Concomitant]
  7. MSO4 (MORPHINE SULFATE) [Concomitant]
  8. LASIX [Concomitant]
  9. ISORDIL [Concomitant]
  10. OMEPRAZOLE [Concomitant]
  11. PRIMIDONE [Concomitant]
  12. PREDNISONE [Concomitant]
  13. DARBEPOETIN ALFA (DARBEPOETIN ALFA) [Concomitant]
  14. ALBUTEROL(ALBUTEROL, ALBUTEROL SULFATE) [Concomitant]
  15. IRON (IRON NOS) [Concomitant]
  16. NITRO SL (NITROGLYCERIN) [Concomitant]

REACTIONS (2)
  - DYSPNOEA [None]
  - LUNG INFILTRATION [None]
